FAERS Safety Report 5648324-4 (Version None)
Quarter: 2008Q1

REPORT INFORMATION
  Report Type: 
  Country: None (occurrence: None)
  Receive Date: 20080229
  Receipt Date: 20080215
  Transmission Date: 20080703
  Serious: Yes (Hospitalization)
  Sender: FDA-Public Use
  Company Number: 2008S1002514

PATIENT
  Age: 80 Year
  Sex: Female

DRUGS (4)
  1. ACYCLOVIR [Suspect]
     Indication: HERPES ZOSTER
     Dosage: 200 MG TWICE A DAY
     Route: 048
     Dates: start: 20001207, end: 20001211
  2. ASPIRIN [Concomitant]
  3. FAMOTIDINE [Concomitant]
  4. METOPROLOL TARTRATE [Concomitant]

REACTIONS (7)
  - BLOOD PRESSURE INCREASED [None]
  - DEPRESSED LEVEL OF CONSCIOUSNESS [None]
  - MALAISE [None]
  - SOMNOLENCE [None]
  - SPEECH DISORDER [None]
  - THERAPEUTIC AGENT TOXICITY [None]
  - TREMOR [None]
